FAERS Safety Report 9765122 (Version 1)
Quarter: 2013Q4

REPORT INFORMATION
  Report Type: Spontaneous
  Country: US (occurrence: None)
  Receive Date: 20131216
  Receipt Date: 20131216
  Transmission Date: 20140711
  Serious: Yes (Disabling)
  Sender: FDA-Public Use
  Company Number: None

PATIENT
  Age: 57 Year
  Sex: Female
  Weight: 43.09 kg

DRUGS (1)
  1. LEVAQUIN [Suspect]
     Indication: BRONCHITIS
     Dosage: 10 PILLS ONCE DAILY TAKEN BY MOUTH
     Route: 048
     Dates: start: 20131208, end: 20131210

REACTIONS (6)
  - Arthralgia [None]
  - Myalgia [None]
  - Malaise [None]
  - Arthralgia [None]
  - Arthralgia [None]
  - Arthralgia [None]
